FAERS Safety Report 7704411-8 (Version None)
Quarter: 2011Q3

REPORT INFORMATION
  Report Type: 
  Country: None (occurrence: None)
  Receive Date: 20110801
  Receipt Date: 20110609
  Transmission Date: 20111222
  Serious: Yes (Other)
  Sender: FDA-Public Use
  Company Number: AMAG201100135

PATIENT
  Age: 49 Year
  Sex: Female

DRUGS (3)
  1. FERAHEME [Suspect]
     Indication: IRON DEFICIENCY ANAEMIA
     Dosage: 510 MG, SINGLE, INTRAVENOUS
     Route: 042
     Dates: start: 20110609, end: 20110609
  2. VIVELLE-DOT [Concomitant]
  3. VITAMIN B 12 (HYDROXOCOBALAMIN) [Concomitant]

REACTIONS (14)
  - HYPERSENSITIVITY [None]
  - HYPERTENSION [None]
  - SNEEZING [None]
  - DYSPNOEA [None]
  - THROAT IRRITATION [None]
  - TACHYCARDIA [None]
  - DYSGEUSIA [None]
  - THROAT TIGHTNESS [None]
  - FEELING ABNORMAL [None]
  - NERVOUSNESS [None]
  - URTICARIA [None]
  - HYPOTENSION [None]
  - PRURITUS [None]
  - COUGH [None]
